FAERS Safety Report 17559267 (Version 1)
Quarter: 2020Q1

REPORT INFORMATION
  Report Type: Spontaneous
  Country: US (occurrence: US)
  Receive Date: 20200319
  Receipt Date: 20200319
  Transmission Date: 20200409
  Serious: No
  Sender: FDA-Public Use
  Company Number: US-ASTRAZENECA-2020SE30960

PATIENT
  Age: 31065 Day
  Sex: Female

DRUGS (1)
  1. SYMBICORT [Suspect]
     Active Substance: BUDESONIDE\FORMOTEROL FUMARATE DIHYDRATE
     Indication: PNEUMONIA
     Dosage: 160/4.5 MCG BID (TWO TIMES A DAY)
     Route: 055

REACTIONS (3)
  - Product dispensing error [Unknown]
  - Fatigue [Unknown]
  - Device issue [Unknown]

NARRATIVE: CASE EVENT DATE: 20200214
